FAERS Safety Report 25930663 (Version 1)
Quarter: 2025Q4

REPORT INFORMATION
  Report Type: Spontaneous
  Country: US (occurrence: US)
  Receive Date: 20251016
  Receipt Date: 20251016
  Transmission Date: 20260118
  Serious: No
  Sender: XERIS PHARMACEUTICALS
  Company Number: US-BRIAN CONNER SVP QUALITY AND CHIEF COMPLIANCE OFFICER-2025XER00699

PATIENT
  Sex: Male

DRUGS (2)
  1. GVOKE [Suspect]
     Active Substance: GLUCAGON
     Indication: Hypoglycaemia
     Dosage: UNK
     Dates: start: 20250922
  2. UNSPECIFIED GLUCOGON NASAL SPRAY [Concomitant]

REACTIONS (2)
  - Product delivery mechanism issue [Unknown]
  - Expired device used [Unknown]

NARRATIVE: CASE EVENT DATE: 20250922
